FAERS Safety Report 7693359-3 (Version None)
Quarter: 2011Q3

REPORT INFORMATION
  Report Type: 
  Country: None (occurrence: None)
  Receive Date: 20110819
  Receipt Date: 20110704
  Transmission Date: 20111222
  Serious: Yes (Hospitalization, Other)
  Sender: FDA-Public Use
  Company Number: JP-PFIZER INC-2011188179

PATIENT
  Age: 73 Year
  Sex: Male

DRUGS (5)
  1. FLUTAMIDE [Suspect]
     Dosage: 375 MG, 1X/DAY
     Route: 048
     Dates: end: 20110620
  2. MIGLITOL [Suspect]
     Indication: DIABETES MELLITUS
     Dosage: 75 MG, 1X/DAY
     Dates: start: 20100803
  3. OMEPRAZOLE [Suspect]
     Dosage: 40 MG, 1X/DAY
     Route: 065
     Dates: start: 20110527, end: 20110608
  4. ADONA [Suspect]
     Dosage: 90 MG, 1X/DAY
     Route: 048
     Dates: end: 20110601
  5. PIPERACILLIN SODIUM [Suspect]
     Dosage: 8 G, 1X/DAY
     Route: 065
     Dates: start: 20110528, end: 20110608

REACTIONS (2)
  - LIVER DISORDER [None]
  - CHOLESTASIS [None]
